FAERS Safety Report 8129419 (Version 3)
Quarter: 2014Q2

REPORT INFORMATION
  Report Type: Spontaneous
  Country: US (occurrence: US)
  Receive Date: 20110909
  Receipt Date: 20140414
  Transmission Date: 20141212
  Serious: Yes (Other)
  Sender: FDA-Public Use
  Company Number: US-BAYER-2011-082544

PATIENT
  Age: 24 Year
  Sex: Female
  Weight: 56.69 kg

DRUGS (3)
  1. YAZ [Suspect]
     Indication: CONTRACEPTION
     Dosage: UNK
     Dates: start: 2008, end: 2009
  2. AMBIEN [Concomitant]
     Dosage: 5 MG, UNK
     Route: 048
  3. LOESTRIN [Concomitant]

REACTIONS (6)
  - Cholecystectomy [Unknown]
  - Cholecystitis chronic [None]
  - Abdominal pain upper [None]
  - Constipation [None]
  - Abdominal tenderness [None]
  - Blood urine present [None]
